FAERS Safety Report 5155739-X (Version None)
Quarter: 2006Q4

REPORT INFORMATION
  Report Type: 
  Country: None (occurrence: None)
  Receive Date: 20061113
  Receipt Date: 20061101
  Transmission Date: 20070319
  Serious: Yes (Death)
  Sender: FDA-Public Use
  Company Number: 2006PV024642

PATIENT
  Age: 52 Year
  Sex: Male

DRUGS (2)
  1. BYETTA [Suspect]
     Indication: DIABETES MELLITUS INSULIN-DEPENDENT
     Dosage: SC
     Route: 058
     Dates: end: 20060101
  2. HUMALOG [Concomitant]

REACTIONS (1)
  - MYOCARDIAL INFARCTION [None]
